FAERS Safety Report 8049559-6 (Version None)
Quarter: 2012Q1

REPORT INFORMATION
  Report Type: 
  Country: None (occurrence: None)
  Receive Date: 20120117
  Receipt Date: 20120109
  Transmission Date: 20120608
  Serious: Yes (Hospitalization)
  Sender: FDA-Public Use
  Company Number: FR-PFIZER INC-2004024873

PATIENT
  Age: 74 Year
  Sex: Female

DRUGS (17)
  1. FLUCONAZOLE [Concomitant]
     Dosage: 50 MG, ONCE
     Route: 048
     Dates: start: 20021216, end: 20021216
  2. LASIX [Concomitant]
     Dosage: 500 MG, TUESDAY, THURSDAY, SATURDAY AND SUNDAY
     Route: 048
     Dates: start: 20020919
  3. OMEPRAZOLE [Concomitant]
     Dosage: 20 MG, 1X/DAY
     Route: 048
     Dates: start: 20020917
  4. VOLTAREN [Interacting]
     Indication: ILL-DEFINED DISORDER
     Dosage: 100 MG, 1X/DAY
     Route: 048
     Dates: start: 20021130, end: 20021216
  5. LEVOTHYROXINE SODIUM [Interacting]
     Indication: ILL-DEFINED DISORDER
     Dosage: 100 UG, 1X/DAY
     Route: 048
     Dates: start: 20020917
  6. CORDARONE [Suspect]
     Dosage: 200 MG, 4X/WEEK
     Route: 048
     Dates: start: 20020917
  7. PREVISCAN [Interacting]
     Indication: ILL-DEFINED DISORDER
     Dosage: 10 MG, 1X/DAY
     Route: 048
     Dates: start: 20021207, end: 20021215
  8. AMITRIPTYLINE HCL [Concomitant]
     Dosage: 50 MG, 1X/DAY
     Route: 048
     Dates: start: 20020917
  9. MUCOMYST [Concomitant]
     Dosage: UNK
     Route: 048
     Dates: start: 20021212, end: 20021216
  10. ROXITHROMYCIN [Interacting]
     Dosage: 300 MG, 1X/DAY
     Route: 048
     Dates: start: 20021213, end: 20021216
  11. ULTRA-LEVURE [Concomitant]
     Dosage: 300 MG, 1X/DAY
     Route: 048
     Dates: start: 20021213, end: 20021216
  12. KAYEXALATE [Concomitant]
     Dosage: 15 G, 4X/WEEK
     Route: 048
     Dates: start: 20021207, end: 20021216
  13. TRAMADOL HCL [Concomitant]
     Dosage: 200 MG, 1X/DAY
     Route: 048
     Dates: start: 20020923, end: 20021216
  14. ATORVASTATIN CALCIUM [Interacting]
     Dosage: 2 DF, 1X/DAY
     Route: 048
     Dates: start: 20020917
  15. PREVISCAN [Interacting]
     Dosage: 5 MG, 1X/DAY
     Route: 048
     Dates: start: 20021216, end: 20021216
  16. NOCTAMID [Concomitant]
     Dosage: 1 MG, 1X/DAY
     Route: 048
     Dates: start: 20020917
  17. RAMIPRIL [Concomitant]
     Dosage: 1.25MG 1 TABLET ON TUESDAY, THURSDAY, SATURDAY AND SUNDAY
     Route: 065
     Dates: start: 20020917

REACTIONS (2)
  - DRUG INTERACTION [None]
  - HAEMORRHAGE [None]
